FAERS Safety Report 18133208 (Version 1)
Quarter: 2020Q3

REPORT INFORMATION
  Report Type: Spontaneous
  Country: DE (occurrence: DE)
  Receive Date: 20200811
  Receipt Date: 20200811
  Transmission Date: 20201103
  Serious: Yes (Other)
  Sender: FDA-Public Use
  Company Number: DE-AUROBINDO-AUR-APL-2020-038009

PATIENT
  Age: 8 Week
  Sex: Male

DRUGS (5)
  1. OBSTINOL [Suspect]
     Active Substance: CALCIUM PANTOTHENATE\DANTHRON
     Indication: PRODUCT USED FOR UNKNOWN INDICATION
     Dosage: UNK,INGESTED BY THE MOTHER POSTPARTUM
     Route: 063
  2. IBUPROFEN. [Suspect]
     Active Substance: IBUPROFEN
     Indication: PRODUCT USED FOR UNKNOWN INDICATION
     Dosage: 400 MILLIGRAM, TWO TIMES A DAY, ABOUT 3?4 DAYS
     Route: 064
  3. ROTAVIRUS VACCINE [Suspect]
     Active Substance: HUMAN ROTAVIRUS A
     Indication: PRODUCT USED FOR UNKNOWN INDICATION
     Dosage: UNK
     Route: 048
  4. MACROGOL [Suspect]
     Active Substance: POLYETHYLENE GLYCOLS
     Indication: PRODUCT USED FOR UNKNOWN INDICATION
     Dosage: UNK,INGESTED BY THE MOTHER POSTPARTUM
     Route: 063
  5. FENUGREEK [Suspect]
     Active Substance: FENUGREEK SEED
     Indication: PRODUCT USED FOR UNKNOWN INDICATION
     Dosage: UNK, 3 TIMES A DAY, APPROX. 2?3 WEEKS BEFOREHAND
     Route: 064

REACTIONS (5)
  - Liver injury [Unknown]
  - Hypovitaminosis [Unknown]
  - Foetal exposure during pregnancy [Unknown]
  - Cholestasis [Unknown]
  - Transaminases increased [Recovered/Resolved]
